FAERS Safety Report 25044326 (Version 5)
Quarter: 2025Q2

REPORT INFORMATION
  Report Type: Report from Study
  Country: CA (occurrence: CA)
  Receive Date: 20250306
  Receipt Date: 20250630
  Transmission Date: 20250716
  Serious: Yes (Other)
  Sender: TAKEDA
  Company Number: CA-TAKEDA-2025TUS022621

PATIENT
  Sex: Female

DRUGS (13)
  1. VEDOLIZUMAB [Suspect]
     Active Substance: VEDOLIZUMAB
     Indication: Crohn^s disease
  2. VEDOLIZUMAB [Suspect]
     Active Substance: VEDOLIZUMAB
  3. VEDOLIZUMAB [Suspect]
     Active Substance: VEDOLIZUMAB
  4. METHOTREXATE [Concomitant]
     Active Substance: METHOTREXATE
     Dosage: 20 MILLIGRAM, 1/WEEK
     Dates: start: 2015
  5. PREDNISONE [Concomitant]
     Active Substance: PREDNISONE
  6. WARFARIN [Concomitant]
     Active Substance: WARFARIN
  7. FOLIC ACID [Concomitant]
     Active Substance: FOLIC ACID
  8. VITAMIN D [Concomitant]
     Active Substance: VITAMIN D NOS
  9. QUINAPRIL [Concomitant]
     Active Substance: QUINAPRIL
  10. SERTRALINE [Concomitant]
     Active Substance: SERTRALINE HYDROCHLORIDE
  11. CALCIUM [Concomitant]
     Active Substance: CALCIUM
  12. ATORVASTATIN [Concomitant]
     Active Substance: ATORVASTATIN
  13. CHOLESTYRAMINE [Concomitant]
     Active Substance: CHOLESTYRAMINE

REACTIONS (2)
  - Cervical dysplasia [Recovered/Resolved]
  - Clostridium difficile infection [Recovered/Resolved]
